FAERS Safety Report 17245407 (Version 1)
Quarter: 2020Q1

REPORT INFORMATION
  Report Type: Spontaneous
  Country: FR (occurrence: FR)
  Receive Date: 20200108
  Receipt Date: 20200108
  Transmission Date: 20200409
  Serious: Yes (Life-Threatening)
  Sender: FDA-Public Use
  Company Number: FR-ROCHE-2514510

PATIENT
  Age: 69 Year
  Sex: Female
  Weight: 61 kg

DRUGS (7)
  1. FELDENE [Concomitant]
     Active Substance: PIROXICAM
  2. STRESAM [Concomitant]
     Active Substance: ETIFOXINE
  3. BISOPROLOL [Concomitant]
     Active Substance: BISOPROLOL
  4. ESOMEPRAZOLE. [Concomitant]
     Active Substance: ESOMEPRAZOLE MAGNESIUM
  5. DOLIPRANE [Concomitant]
     Active Substance: ACETAMINOPHEN
  6. DESLORATADINE. [Concomitant]
     Active Substance: DESLORATADINE
  7. MABTHERA [Suspect]
     Active Substance: RITUXIMAB
     Indication: RHEUMATOID ARTHRITIS
     Dosage: J1 - J15
     Route: 042
     Dates: start: 2008, end: 20190708

REACTIONS (1)
  - Stress cardiomyopathy [Recovered/Resolved]

NARRATIVE: CASE EVENT DATE: 20190720
